FAERS Safety Report 9656563 (Version 3)
Quarter: 2014Q2

REPORT INFORMATION
  Report Type: Spontaneous
  Country: GB (occurrence: None)
  Receive Date: 20131028
  Receipt Date: 20140402
  Transmission Date: 20141212
  Serious: Yes (Other)
  Sender: FDA-Public Use
  Company Number: AUR-APL-2013-08663

PATIENT
  Age: 23 Year
  Sex: Male

DRUGS (4)
  1. AMOXICILLIN [Suspect]
     Indication: INFECTION
     Route: 048
     Dates: start: 20130724, end: 20130729
  2. CLOZARIL [Suspect]
     Indication: SCHIZOPHRENIA
     Dosage: 225 MG (225 MG, 1 IN 1 D), ORAL
     Route: 048
     Dates: start: 20130712
  3. LACTULOSE (LACTULOSE) [Concomitant]
  4. PARACETAMOL (PARACETAMOL) [Concomitant]

REACTIONS (8)
  - Blood glucose increased [None]
  - Alanine aminotransferase increased [None]
  - C-reactive protein increased [None]
  - Eosinophil count increased [None]
  - Blood albumin increased [None]
  - Influenza like illness [None]
  - Sinus tachycardia [None]
  - Differential white blood cell count abnormal [None]
